FAERS Safety Report 8469622 (Version 4)
Quarter: 2013Q1

REPORT INFORMATION
  Report Type: Spontaneous
  Country: JP (occurrence: JP)
  Receive Date: 20120321
  Receipt Date: 20130102
  Transmission Date: 20140127
  Serious: Yes (Life-Threatening, Hospitalization, Other)
  Sender: FDA-Public Use
  Company Number: JP-BAYER-2012-027228

PATIENT
  Age: 41 Year
  Sex: Male
  Weight: 51 kg

DRUGS (1)
  1. BETAFERON [Suspect]
     Indication: MULTIPLE SCLEROSIS
     Dosage: DAILY DOSE 8 MIU
     Route: 058
     Dates: start: 200401

REACTIONS (22)
  - Malignant hypertension [None]
  - Posterior reversible encephalopathy syndrome [Recovering/Resolving]
  - Somnolence [Recovering/Resolving]
  - Visual acuity reduced [Recovering/Resolving]
  - Eye movement disorder [Recovering/Resolving]
  - Dyslalia [Recovering/Resolving]
  - Ataxia [Recovering/Resolving]
  - Altered state of consciousness [Recovering/Resolving]
  - Microangiopathic haemolytic anaemia [Recovering/Resolving]
  - Thrombotic microangiopathy [Recovering/Resolving]
  - Pleural effusion [Recovered/Resolved]
  - Ascites [Recovered/Resolved]
  - Multiple sclerosis relapse [Recovering/Resolving]
  - Diplopia [Recovering/Resolving]
  - Dyslalia [Recovering/Resolving]
  - Gait disturbance [Recovering/Resolving]
  - Malaise [Recovering/Resolving]
  - Face oedema [Recovering/Resolving]
  - Eczema [Recovering/Resolving]
  - Aphagia [Recovering/Resolving]
  - Platelet count decreased [Recovering/Resolving]
  - Renal failure acute [None]
